FAERS Safety Report 5552595-2 (Version None)
Quarter: 2007Q4

REPORT INFORMATION
  Report Type: 
  Country: None (occurrence: None)
  Receive Date: 20071212
  Receipt Date: 20070620
  Transmission Date: 20080405
  Serious: No
  Sender: FDA-Public Use
  Company Number: US-AMGEN-KDL224080

PATIENT
  Sex: Male

DRUGS (3)
  1. ENBREL [Suspect]
     Indication: DRUG USE FOR UNKNOWN INDICATION
     Route: 058
     Dates: start: 20070316
  2. DEPAKOTE [Concomitant]
  3. ZYPREXA [Concomitant]

REACTIONS (2)
  - ABDOMINAL PAIN [None]
  - HAEMATURIA [None]
